FAERS Safety Report 4514888-7 (Version None)
Quarter: 2004Q4

REPORT INFORMATION
  Report Type: 
  Country: None (occurrence: None)
  Receive Date: 20041126
  Receipt Date: 20041111
  Transmission Date: 20050328
  Serious: Yes (Disabling, Other)
  Sender: FDA-Public Use
  Company Number: 2004091220

PATIENT
  Age: 75 Year
  Sex: Female

DRUGS (12)
  1. LIPITOR [Suspect]
     Indication: HYPERLIPIDAEMIA
     Dosage: 5 MG; ORAL
     Route: 048
     Dates: start: 20040702, end: 20041027
  2. METOPROLOL TARTRATE [Concomitant]
  3. LOXOPROFEN SODIUM [Concomitant]
  4. OXYBUTYNIN HYDROCHLORIDE [Concomitant]
  5. MAGNESIUM OXIDE [Concomitant]
  6. LOSARTAN POTASSIUM [Concomitant]
  7. AMLODIPINE BESYLATE [Concomitant]
  8. METOPROLOL TARTRATE [Concomitant]
  9. ALOSENN (ACHILLEA, RUBIA ROOT TINCTURE, SENNA FRUIT, SENNA LEAF, TARAX [Concomitant]
  10. NITRAZEPAM [Concomitant]
  11. ALL OTHER THERAPEUTIC PRODUCTS [Concomitant]
  12. BEVITOTAL COMP. (ASCORBIC ACID, CALCIUM PANTOTHENATE, NICOTINAMIDE, PY [Concomitant]

REACTIONS (7)
  - BLOOD ALKALINE PHOSPHATASE INCREASED [None]
  - COLD SWEAT [None]
  - DYSPNOEA [None]
  - GAIT DISTURBANCE [None]
  - MOVEMENT DISORDER [None]
  - SCAR [None]
  - SUFFOCATION FEELING [None]
